FAERS Safety Report 9995654 (Version 1)
Quarter: 2014Q1

REPORT INFORMATION
  Report Type: Spontaneous
  Country: US (occurrence: US)
  Receive Date: 20140311
  Receipt Date: 20140311
  Transmission Date: 20141002
  Serious: No
  Sender: FDA-Public Use
  Company Number: US-GALDERMA-US13001331

PATIENT
  Age: 54 Year
  Sex: Female
  Weight: 54.4 kg

DRUGS (5)
  1. TRI-LUMA CREAM (FLUOCINOLONE ACETONIDE 0.01%, HYDROQUINONE 4%, TRETINO [Suspect]
     Indication: SOLAR LENTIGO
     Route: 061
     Dates: start: 20130324, end: 20130424
  2. TRI-LUMA CREAM (FLUOCINOLONE ACETONIDE 0.01%, HYDROQUINONE 4%, TRETINO [Suspect]
     Indication: SKIN HYPERPIGMENTATION
  3. SUNSCREENS [Concomitant]
     Indication: PROPHYLAXIS AGAINST SOLAR RADIATION
     Route: 061
  4. FACIAL MAKEUP [Concomitant]
     Indication: THERAPEUTIC SKIN CARE TOPICAL
     Route: 061
  5. ARMOUR [Concomitant]
     Indication: THYROID DISORDER

REACTIONS (2)
  - Skin discomfort [Unknown]
  - Condition aggravated [Not Recovered/Not Resolved]
